FAERS Safety Report 11377265 (Version 1)
Quarter: 2015Q3

REPORT INFORMATION
  Report Type: Spontaneous
  Country: US (occurrence: US)
  Receive Date: 20150811
  Receipt Date: 20150811
  Transmission Date: 20151125
  Serious: No
  Sender: FDA-Public Use
  Company Number: US-ELI_LILLY_AND_COMPANY-US200811001210

PATIENT
  Sex: Female

DRUGS (3)
  1. LANTUS [Concomitant]
     Active Substance: INSULIN GLARGINE
  2. HUMULIN N [Suspect]
     Active Substance: INSULIN HUMAN
  3. HUMULIN U [Suspect]
     Active Substance: INSULIN HUMAN

REACTIONS (2)
  - Influenza like illness [Recovered/Resolved]
  - Influenza [Recovered/Resolved]
